FAERS Safety Report 4950696-0 (Version None)
Quarter: 2006Q1

REPORT INFORMATION
  Report Type: 
  Country: None (occurrence: None)
  Receive Date: 20060321
  Receipt Date: 20060321
  Transmission Date: 20060701
  Serious: Yes (Other)
  Sender: FDA-Public Use
  Company Number: None

PATIENT
  Age: 72 Year
  Sex: Male
  Weight: 71.7 kg

DRUGS (8)
  1. LISINOPRIL [Suspect]
  2. SERTRALINE HCL [Concomitant]
  3. ASPIRIN [Concomitant]
  4. CLOPIDOGREL BISULFATE [Concomitant]
  5. SIMVASTATIN [Concomitant]
  6. TERAZOSIN HCL [Concomitant]
  7. TRAZODONE HCL [Concomitant]
  8. DOCUSATE [Concomitant]

REACTIONS (1)
  - HYPERKALAEMIA [None]
